FAERS Safety Report 7936941-8 (Version None)
Quarter: 2011Q4

REPORT INFORMATION
  Report Type: 
  Country: None (occurrence: None)
  Receive Date: 20111123
  Receipt Date: 20111121
  Transmission Date: 20120403
  Serious: No
  Sender: FDA-Public Use
  Company Number: US-PFIZER INC-2011284754

PATIENT
  Sex: Male
  Weight: 77.098 kg

DRUGS (2)
  1. TOPROL-XL [Concomitant]
     Indication: HYPERTENSION
     Dosage: UNK
  2. ADVIL CONGESTION RELIEF [Suspect]
     Indication: NASAL CONGESTION
     Dosage: UNK, EVERY 4 HRS
     Route: 048
     Dates: start: 20111114, end: 20111119

REACTIONS (1)
  - DRUG INEFFECTIVE [None]
